FAERS Safety Report 8335009-9 (Version None)
Quarter: 2012Q2

REPORT INFORMATION
  Report Type: 
  Country: None (occurrence: None)
  Receive Date: 20120503
  Receipt Date: 20100824
  Transmission Date: 20120825
  Serious: No
  Sender: FDA-Public Use
  Company Number: US-TEVA-2010001806

PATIENT
  Sex: Male
  Weight: 1.456 kg

DRUGS (5)
  1. PROVIGIL [Suspect]
     Dosage: 400 MILLIGRAM;
  2. PROVIGIL [Suspect]
     Indication: HYPERSOMNIA
     Dosage: 200 MILLIGRAM;
     Route: 048
     Dates: start: 20070101
  3. PROVIGIL [Suspect]
  4. NUVIGIL [Suspect]
     Indication: HYPERSOMNIA
     Dosage: 250 MILLIGRAM;
     Route: 048
     Dates: start: 20100201, end: 20100301
  5. FLUTICASONE FUROATE [Concomitant]
     Indication: SINUS DISORDER
     Dates: start: 20100201

REACTIONS (3)
  - HEADACHE [None]
  - DRUG INEFFECTIVE FOR UNAPPROVED INDICATION [None]
  - DRUG TOLERANCE [None]
